FAERS Safety Report 10639612 (Version 2)
Quarter: 2015Q1

REPORT INFORMATION
  Report Type: Spontaneous
  Country: DE (occurrence: DE)
  Receive Date: 20141209
  Receipt Date: 20150204
  Transmission Date: 20150720
  Serious: No
  Sender: FDA-Public Use
  Company Number: DE-BEH-2014046924

PATIENT
  Age: 75 Year
  Sex: Female

DRUGS (5)
  1. PRIVIGEN [Suspect]
     Active Substance: HUMAN IMMUNOGLOBULIN G
  2. PRIVIGEN [Suspect]
     Active Substance: HUMAN IMMUNOGLOBULIN G
  3. PRIVIGEN [Suspect]
     Active Substance: HUMAN IMMUNOGLOBULIN G
     Dosage: 5 X 30 G
  4. PRIVIGEN [Suspect]
     Active Substance: HUMAN IMMUNOGLOBULIN G
     Indication: MYASTHENIA GRAVIS CRISIS
  5. PRIVIGEN [Suspect]
     Active Substance: HUMAN IMMUNOGLOBULIN G

REACTIONS (4)
  - Blood immunoglobulin M increased [Recovered/Resolved]
  - Hepatitis B core antibody positive [Recovered/Resolved]
  - Hepatitis B core antibody positive [Recovered/Resolved]
  - Light chain analysis increased [Recovered/Resolved]

NARRATIVE: CASE EVENT DATE: 20141125
